FAERS Safety Report 7626437-5 (Version None)
Quarter: 2011Q3

REPORT INFORMATION
  Report Type: 
  Country: None (occurrence: None)
  Receive Date: 20110721
  Receipt Date: 20110711
  Transmission Date: 20111222
  Serious: Yes (Hospitalization)
  Sender: FDA-Public Use
  Company Number: JP-ROCHE-767693

PATIENT
  Sex: Male
  Weight: 67 kg

DRUGS (7)
  1. PREDNISOLONE [Concomitant]
     Route: 048
     Dates: start: 20110314, end: 20110403
  2. ACTEMRA [Suspect]
     Route: 041
     Dates: start: 20110323, end: 20110323
  3. ACTEMRA [Suspect]
     Indication: JUVENILE ARTHRITIS
     Dosage: 8 MG/KG
     Route: 041
     Dates: start: 20080601, end: 20110120
  4. ACTEMRA [Suspect]
     Route: 041
     Dates: start: 20110401
  5. PREDNISOLONE [Concomitant]
     Route: 048
     Dates: start: 20110404
  6. PREDNISOLONE [Concomitant]
     Route: 048
     Dates: start: 20080101, end: 20101209
  7. PREDNISOLONE [Concomitant]
     Route: 048
     Dates: start: 20080101, end: 20110313

REACTIONS (12)
  - THYROIDITIS [None]
  - BEHCET'S SYNDROME [None]
  - TAKAYASU'S ARTERITIS [None]
  - HEADACHE [None]
  - OROPHARYNGEAL PAIN [None]
  - DERMAL CYST [None]
  - C-REACTIVE PROTEIN INCREASED [None]
  - SUBCUTANEOUS NODULE [None]
  - STAPHYLOCOCCAL INFECTION [None]
  - INFLAMMATION [None]
  - MALAISE [None]
  - MENINGITIS [None]
